FAERS Safety Report 9920385 (Version 2)
Quarter: 2014Q1

REPORT INFORMATION
  Report Type: Report from Study
  Country: NL (occurrence: NL)
  Receive Date: 20140224
  Receipt Date: 20140224
  Transmission Date: 20141002
  Serious: Yes (Life-Threatening)
  Sender: FDA-Public Use
  Company Number: NL-ABBVIE-13P-114-1144091-00

PATIENT
  Age: 76 Year
  Sex: Male
  Weight: 70 kg

DRUGS (5)
  1. LUCRIN DEPOT [Suspect]
     Indication: PROSTATE CANCER
     Route: 058
     Dates: start: 20120912
  2. ACETYLSALICYLIC ACID [Concomitant]
     Indication: ANTICOAGULANT THERAPY
     Route: 048
  3. BISOPROLOL [Concomitant]
     Indication: ANGINA PECTORIS
     Route: 048
  4. PERINDOPRIL (ERBUMINE) [Concomitant]
     Indication: ANGINA PECTORIS
     Route: 048
  5. PRAVASTATINE [Concomitant]
     Indication: HYPERCHOLESTEROLAEMIA
     Route: 048

REACTIONS (2)
  - Terminal state [Not Recovered/Not Resolved]
  - Hot flush [Not Recovered/Not Resolved]
